FAERS Safety Report 5893536-8 (Version None)
Quarter: 2008Q3

REPORT INFORMATION
  Report Type: 
  Country: None (occurrence: None)
  Receive Date: 20080923
  Receipt Date: 20080912
  Transmission Date: 20090109
  Serious: Yes (Other)
  Sender: FDA-Public Use
  Company Number: GB-NOVOPROD-279368

PATIENT
  Sex: Female

DRUGS (1)
  1. NORDITROPIN [Suspect]
     Indication: GROWTH HORMONE DEFICIENCY
     Dosage: .2 MG, UNK
     Dates: start: 20080905, end: 20080905

REACTIONS (3)
  - APHASIA [None]
  - HEADACHE [None]
  - VISUAL IMPAIRMENT [None]
